FAERS Safety Report 6874504-6 (Version None)
Quarter: 2010Q3

REPORT INFORMATION
  Report Type: 
  Country: None (occurrence: None)
  Receive Date: 20100723
  Receipt Date: 20100723
  Transmission Date: 20110219
  Serious: No
  Sender: FDA-Public Use
  Company Number: None

PATIENT

DRUGS (2)
  1. TRIAMCINOLONE ACETONIDE [Suspect]
     Indication: RASH PAPULAR
     Dates: start: 20100201, end: 20100722
  2. FLUOCINOLONE ACETONIDE [Suspect]
     Indication: HYPERKERATOSIS

REACTIONS (3)
  - GINGIVAL ERYTHEMA [None]
  - GINGIVAL PAIN [None]
  - PRODUCT QUALITY ISSUE [None]
